FAERS Safety Report 8013228-9 (Version None)
Quarter: 2011Q4

REPORT INFORMATION
  Report Type: 
  Country: None (occurrence: None)
  Receive Date: 20111229
  Receipt Date: 20111229
  Transmission Date: 20120403
  Serious: Yes (Other)
  Sender: FDA-Public Use
  Company Number: None

PATIENT
  Age: 83 Year
  Sex: Male
  Weight: 72 kg

DRUGS (8)
  1. PRADAXA [Concomitant]
     Route: 048
  2. RENAL CAPS [Concomitant]
     Route: 048
  3. METOPROLOL [Concomitant]
     Route: 048
  4. PRADAXA [Suspect]
     Dosage: 150 MG
     Route: 048
     Dates: start: 20111001, end: 20111228
  5. FLINTSTONES MULTIVITAMINS [Concomitant]
     Route: 048
  6. DONEPEZIL HCL [Concomitant]
     Route: 048
  7. LEVOTHYROXINE SODIUM [Concomitant]
     Route: 048
  8. PANTOPRAZOLE [Concomitant]
     Route: 048

REACTIONS (1)
  - HAEMATURIA [None]
